FAERS Safety Report 24609613 (Version 1)
Quarter: 2024Q4

REPORT INFORMATION
  Report Type: Spontaneous
  Country: FR (occurrence: FR)
  Receive Date: 20241112
  Receipt Date: 20241112
  Transmission Date: 20250115
  Serious: Yes (Death, Life-Threatening, Other)
  Sender: PFIZER
  Company Number: None

PATIENT
  Age: 49 Year
  Sex: Female
  Weight: 77 kg

DRUGS (10)
  1. CARBOPLATIN [Suspect]
     Active Substance: CARBOPLATIN
     Indication: Small cell carcinoma of the cervix
     Dosage: 590 MG, 1X/DAY
     Route: 042
     Dates: start: 20140825, end: 20140826
  2. CARBOPLATIN [Suspect]
     Active Substance: CARBOPLATIN
     Dosage: 590 MG, 1X/DAY
     Route: 042
     Dates: start: 20140922, end: 20140923
  3. CARBOPLATIN [Suspect]
     Active Substance: CARBOPLATIN
     Dosage: 590 MG, 1X/DAY
     Route: 042
     Dates: start: 20141020, end: 20141021
  4. ETOPOSIDE [Suspect]
     Active Substance: ETOPOSIDE
     Indication: Small cell carcinoma of the cervix
     Dosage: 180 MG, 1X/DAY
     Route: 042
     Dates: start: 20140825, end: 20140828
  5. ETOPOSIDE [Suspect]
     Active Substance: ETOPOSIDE
     Dosage: 180 MG, 1X/DAY
     Route: 042
     Dates: start: 20140922, end: 20140925
  6. ETOPOSIDE [Suspect]
     Active Substance: ETOPOSIDE
     Dosage: 180 MG, 1X/DAY
     Route: 042
     Dates: start: 20141020, end: 20141023
  7. METHYLPREDNISOLONE [Concomitant]
     Active Substance: METHYLPREDNISOLONE
     Dosage: UNK
  8. ONDANSETRON [Concomitant]
     Active Substance: ONDANSETRON
     Dosage: UNK
  9. NEULASTA [Concomitant]
     Active Substance: PEGFILGRASTIM
     Dosage: UNK
  10. PRIMPERAN [Concomitant]
     Active Substance: METOCLOPRAMIDE HYDROCHLORIDE
     Dosage: UNK

REACTIONS (2)
  - Death [Fatal]
  - Thrombocytopenia [Recovered/Resolved]

NARRATIVE: CASE EVENT DATE: 20140911
